FAERS Safety Report 9641631 (Version 3)
Quarter: 2014Q1

REPORT INFORMATION
  Report Type: Spontaneous
  Country: JP (occurrence: JP)
  Receive Date: 20131023
  Receipt Date: 20140128
  Transmission Date: 20141002
  Serious: Yes (Other)
  Sender: FDA-Public Use
  Company Number: JP-GLAXOSMITHKLINE-B0933763A

PATIENT
  Age: 50 Year
  Sex: Female
  Weight: 46 kg

DRUGS (7)
  1. TYKERB [Suspect]
     Indication: BREAST CANCER
     Dosage: 1250MG PER DAY
     Route: 048
     Dates: start: 20100319, end: 20130828
  2. XELODA [Suspect]
     Indication: BREAST CANCER
     Dosage: 1200MG TWICE PER DAY
     Route: 048
     Dates: start: 20100319, end: 20130828
  3. LOPEMIN [Concomitant]
     Route: 048
  4. FARESTON [Concomitant]
     Indication: BREAST CANCER
     Dosage: 1IUAX PER DAY
     Route: 048
     Dates: start: 20100615, end: 20130828
  5. LOXONIN [Concomitant]
     Route: 065
  6. AZULENE [Concomitant]
     Route: 065
  7. ZOMETA [Concomitant]
     Indication: BREAST CANCER
     Dosage: 1IUAX IN THE MORNING
     Route: 042
     Dates: start: 20080423

REACTIONS (3)
  - Myasthenia gravis [Recovering/Resolving]
  - Eyelid ptosis [Unknown]
  - Diplopia [Unknown]
